FAERS Safety Report 7733073-9 (Version None)
Quarter: 2011Q3

REPORT INFORMATION
  Report Type: 
  Country: None (occurrence: None)
  Receive Date: 20110907
  Receipt Date: 20110901
  Transmission Date: 20111222
  Serious: Yes (Other)
  Sender: FDA-Public Use
  Company Number: PHEH2011US03316

PATIENT
  Age: 53 Year
  Sex: Female

DRUGS (1)
  1. RECLAST [Suspect]
     Dosage: 5 MG, PER YEAR
     Route: 042
     Dates: start: 20110804

REACTIONS (8)
  - HEADACHE [None]
  - EYE PAIN [None]
  - ARTHRALGIA [None]
  - BACK PAIN [None]
  - ERYTHEMA [None]
  - PAIN [None]
  - VOMITING [None]
  - LOWER LIMB FRACTURE [None]
